FAERS Safety Report 23501774 (Version 2)
Quarter: 2024Q1

REPORT INFORMATION
  Report Type: Spontaneous
  Country: FR (occurrence: FR)
  Receive Date: 20240208
  Receipt Date: 20240320
  Transmission Date: 20240409
  Serious: Yes (Other)
  Sender: FDA-Public Use
  Company Number: None

PATIENT
  Age: 30 Year
  Sex: Female
  Weight: 65 kg

DRUGS (2)
  1. RIZATRIPTAN [Suspect]
     Active Substance: RIZATRIPTAN
     Indication: Migraine
     Dosage: 5 MG PER ATTACK; 15 TO 17 DOSES PER MONTH
     Route: 048
     Dates: start: 2019
  2. PROPRANOLOL [Concomitant]
     Active Substance: PROPRANOLOL HYDROCHLORIDE
     Indication: Migraine
     Route: 048
     Dates: start: 202112

REACTIONS (1)
  - Peripheral ischaemia [Recovered/Resolved]

NARRATIVE: CASE EVENT DATE: 20191201
